FAERS Safety Report 19008156 (Version 1)
Quarter: 2021Q1

REPORT INFORMATION
  Report Type: Report from Study
  Country: CA (occurrence: CA)
  Receive Date: 20210315
  Receipt Date: 20210315
  Transmission Date: 20210420
  Serious: Yes (Other)
  Sender: FDA-Public Use
  Company Number: PHHY2019CA030656

PATIENT
  Age: 58 Year
  Sex: Male

DRUGS (4)
  1. COSENTYX [Suspect]
     Active Substance: SECUKINUMAB
     Indication: PSORIATIC ARTHROPATHY
     Dosage: 150 MG, QMO
     Route: 058
     Dates: start: 20190114
  2. METHOTREXATE. [Concomitant]
     Active Substance: METHOTREXATE
     Indication: PRODUCT USED FOR UNKNOWN INDICATION
     Dosage: 25 MG, UNK
     Route: 065
     Dates: start: 201803
  3. COSENTYX [Suspect]
     Active Substance: SECUKINUMAB
     Dosage: 150 MG, QW
     Route: 058
     Dates: start: 201901
  4. COSENTYX [Suspect]
     Active Substance: SECUKINUMAB
     Dosage: UNK
     Route: 065
     Dates: start: 20210212

REACTIONS (14)
  - Asthenia [Unknown]
  - Rash erythematous [Unknown]
  - Psoriasis [Unknown]
  - Oropharyngeal pain [Unknown]
  - Fatigue [Unknown]
  - Hypoaesthesia [Unknown]
  - Tongue disorder [Unknown]
  - Sinusitis [Unknown]
  - Glossodynia [Unknown]
  - Abdominal distension [Unknown]
  - Back pain [Unknown]
  - Depression [Unknown]
  - Pain [Unknown]
  - Angina pectoris [Unknown]

NARRATIVE: CASE EVENT DATE: 202008
